FAERS Safety Report 10147208 (Version 1)
Quarter: 2014Q2

REPORT INFORMATION
  Report Type: Spontaneous
  Country: US (occurrence: US)
  Receive Date: 20140501
  Receipt Date: 20140501
  Transmission Date: 20141212
  Serious: Yes (Other)
  Sender: FDA-Public Use
  Company Number: PHEH2014US008327

PATIENT
  Sex: Male

DRUGS (1)
  1. EXELON PATCH [Suspect]
     Indication: PARKINSON^S DISEASE
     Dosage: 9.5 MG, DAILY
     Route: 062

REACTIONS (7)
  - Speech disorder [Unknown]
  - Disorientation [Unknown]
  - Dyspepsia [Unknown]
  - Abdominal distension [Unknown]
  - Dizziness [Unknown]
  - Headache [Unknown]
  - Drug withdrawal syndrome [Unknown]
